FAERS Safety Report 6035245-0 (Version None)
Quarter: 2009Q1

REPORT INFORMATION
  Report Type: 
  Country: None (occurrence: None)
  Receive Date: 20090109
  Receipt Date: 20081214
  Transmission Date: 20090719
  Serious: Yes (Death)
  Sender: FDA-Public Use
  Company Number: 123370

PATIENT
  Age: 69 Year
  Sex: Male

DRUGS (10)
  1. ETOPOSIDE [Suspect]
     Indication: NON-HODGKIN'S LYMPHOMA
  2. MITOXANTRONE HYDROCHLORIDE [Suspect]
     Indication: NON-HODGKIN'S LYMPHOMA
  3. VINCRISTINE [Suspect]
     Indication: NON-HODGKIN'S LYMPHOMA
  4. (RITUXIMAB) [Suspect]
     Indication: NON-HODGKIN'S LYMPHOMA
  5. CYCLOPHOSPHAMIDE [Suspect]
     Indication: NON-HODGKIN'S LYMPHOMA
  6. PREDNISOLONE [Suspect]
     Indication: NON-HODGKIN'S LYMPHOMA
  7. PREDNISOLONE [Concomitant]
  8. WARFARIN SODIUM [Concomitant]
  9. (CANDESARTAN) [Concomitant]
  10. OMEPRAZOLE [Concomitant]

REACTIONS (6)
  - CONTINUOUS HAEMODIAFILTRATION [None]
  - HEPATIC FUNCTION ABNORMAL [None]
  - HYPERAMMONAEMIC ENCEPHALOPATHY [None]
  - METABOLIC ACIDOSIS [None]
  - NORMOCHROMIC NORMOCYTIC ANAEMIA [None]
  - RESPIRATORY ALKALOSIS [None]
